FAERS Safety Report 7328197-4 (Version None)
Quarter: 2011Q1

REPORT INFORMATION
  Report Type: 
  Country: None (occurrence: None)
  Receive Date: 20110303
  Receipt Date: 20110224
  Transmission Date: 20110831
  Serious: Yes (Other)
  Sender: FDA-Public Use
  Company Number: US-NOVOPROD-321357

PATIENT
  Sex: Male

DRUGS (1)
  1. VICTOZA [Suspect]
     Dosage: NO LONGER SUSPECT DRUG, RETAINED TO ALLOW ELECTRONIC SUBMISSION OF REPORT

REACTIONS (1)
  - PANCREATITIS [None]
